FAERS Safety Report 24468285 (Version 1)
Quarter: 2024Q4

REPORT INFORMATION
  Report Type: Spontaneous
  Country: FR (occurrence: FR)
  Receive Date: 20241018
  Receipt Date: 20241018
  Transmission Date: 20250114
  Serious: Yes (Hospitalization)
  Sender: RANBAXY
  Company Number: FR-SUN PHARMACEUTICAL INDUSTRIES LTD-2024RR-473758

PATIENT
  Age: 1 Day
  Sex: Male
  Weight: 2.26 kg

DRUGS (5)
  1. QUETIAPINE [Suspect]
     Active Substance: QUETIAPINE
     Indication: Mental disorder
     Dosage: 50 MILLIGRAM, DAILY
     Route: 064
     Dates: start: 20240114, end: 20240317
  2. PAROXETINE [Suspect]
     Active Substance: PAROXETINE
     Indication: Mental disorder
     Dosage: 20 MILLIGRAM, DAILY
     Route: 064
     Dates: end: 20240317
  3. COCAINE [Suspect]
     Active Substance: COCAINE
     Indication: Dependence
     Dosage: UNK
     Route: 064
     Dates: end: 20231228
  4. ALCOHOL [Suspect]
     Active Substance: ALCOHOL
     Indication: Dependence
     Dosage: UNK
     Route: 064
     Dates: end: 20231228
  5. OXAZEPAM [Suspect]
     Active Substance: OXAZEPAM
     Indication: Mental disorder
     Dosage: 10 MILLIGRAM, DAILY
     Route: 064
     Dates: end: 20240317

REACTIONS (2)
  - Maternal exposure during pregnancy [Recovered/Resolved]
  - Premature baby [Recovered/Resolved]
